FAERS Safety Report 5288039-8 (Version None)
Quarter: 2007Q1

REPORT INFORMATION
  Report Type: 
  Country: None (occurrence: None)
  Receive Date: 20070116
  Receipt Date: 20061018
  Transmission Date: 20070707
  Serious: No
  Sender: FDA-Public Use
  Company Number: 2006SP003732

PATIENT
  Age: 63 Year
  Sex: Female

DRUGS (3)
  1. LUNESTA [Suspect]
     Indication: INSOMNIA
     Dosage: 2 MG, 1X; ORAL
     Route: 048
     Dates: start: 20061011, end: 20061011
  2. ESTROGENS CONJUGATED [Concomitant]
  3. VITAMIN CAP [Concomitant]

REACTIONS (1)
  - RASH [None]
